FAERS Safety Report 16123959 (Version 2)
Quarter: 2019Q2

REPORT INFORMATION
  Report Type: Report from Study
  Country: CA (occurrence: CA)
  Receive Date: 20190327
  Receipt Date: 20190419
  Transmission Date: 20190711
  Serious: Yes (Death, Hospitalization)
  Sender: FDA-Public Use
  Company Number: CA-HLSUS-2019-CA-000331

PATIENT
  Age: 89 Year
  Sex: Female
  Weight: 55 kg

DRUGS (7)
  1. ACETYLSALICYLIC ACID (ASA) [Concomitant]
     Active Substance: ASPIRIN
     Dosage: 80 MG
  2. FLORINEF ACETATE [Concomitant]
     Active Substance: FLUDROCORTISONE ACETATE
  3. SYNTHROID [Concomitant]
     Active Substance: LEVOTHYROXINE SODIUM
  4. CYANOCOBALAMIN. [Concomitant]
     Active Substance: CYANOCOBALAMIN
     Dosage: 1200 MCG
  5. CLOZARIL [Suspect]
     Active Substance: CLOZAPINE
     Route: 048
     Dates: start: 19940608, end: 20190311
  6. MS-IR [Concomitant]
     Dosage: 1 TAB MORNING AND 1 TAB EVENING
  7. SULFATRIM [Concomitant]
     Active Substance: SULFAMETHOXAZOLE\TRIMETHOPRIM
     Dosage: 2 TIMES A WEEK

REACTIONS (13)
  - Death [Fatal]
  - Fall [Unknown]
  - Hypotension [Unknown]
  - Asthenia [Unknown]
  - Epilepsy [Unknown]
  - Arteriosclerosis [Unknown]
  - Pulmonary embolism [Unknown]
  - Cholangitis [Unknown]
  - Sepsis [Unknown]
  - Jaundice [Unknown]
  - Bile duct stone [Unknown]
  - Somnolence [Unknown]
  - Delirium [Unknown]

NARRATIVE: CASE EVENT DATE: 201811
